FAERS Safety Report 7866778-X (Version None)
Quarter: 2011Q4

REPORT INFORMATION
  Report Type: 
  Country: None (occurrence: None)
  Receive Date: 20111028
  Receipt Date: 20110810
  Transmission Date: 20120403
  Serious: No
  Sender: FDA-Public Use
  Company Number: US-GLAXOSMITHKLINE-A0941252A

PATIENT
  Sex: Female

DRUGS (1)
  1. ADVAIR DISKUS 100/50 [Suspect]
     Route: 055
     Dates: start: 19800101

REACTIONS (8)
  - ANXIETY [None]
  - PAIN [None]
  - ADVERSE EVENT [None]
  - THERMAL BURN [None]
  - ORAL FUNGAL INFECTION [None]
  - SCAR [None]
  - ADVERSE DRUG REACTION [None]
  - TREMOR [None]
